FAERS Safety Report 4977707-0 (Version None)
Quarter: 2006Q2

REPORT INFORMATION
  Report Type: 
  Country: None (occurrence: None)
  Receive Date: 20060414
  Receipt Date: 20060331
  Transmission Date: 20061013
  Serious: Yes (Death, Hospitalization)
  Sender: FDA-Public Use
  Company Number: BR-2006-007351

PATIENT
  Age: 75 Year
  Sex: Male

DRUGS (2)
  1. BETAFERON (INTERFERON BETA - 1B) INJECTION. 250UG [Suspect]
     Indication: MULTIPLE SCLEROSIS
     Dosage: EVERY 2D, SUBCUTANEOUS
     Route: 058
     Dates: start: 20060201, end: 20060322
  2. SEROQUEL [Concomitant]

REACTIONS (8)
  - ACUTE RESPIRATORY FAILURE [None]
  - ASTHENIA [None]
  - CONFUSIONAL STATE [None]
  - INCREASED BRONCHIAL SECRETION [None]
  - MULTIPLE SCLEROSIS [None]
  - MUSCULOSKELETAL STIFFNESS [None]
  - ORAL INTAKE REDUCED [None]
  - PYREXIA [None]
